FAERS Safety Report 17946811 (Version 1)
Quarter: 2020Q2

REPORT INFORMATION
  Report Type: Spontaneous
  Country: AU (occurrence: AU)
  Receive Date: 20200626
  Receipt Date: 20200626
  Transmission Date: 20200714
  Serious: Yes (Other)
  Sender: FDA-Public Use
  Company Number: AU-ALKEM LABORATORIES LIMITED-AU-ALKEM-2020-02870

PATIENT
  Age: 47 Year
  Sex: Female

DRUGS (1)
  1. OLANZAPINE. [Suspect]
     Active Substance: OLANZAPINE
     Indication: PRODUCT USED FOR UNKNOWN INDICATION
     Dosage: UNK
     Route: 065

REACTIONS (12)
  - Haematocrit increased [Unknown]
  - Platelet count increased [Unknown]
  - Hallucination, auditory [Unknown]
  - Electrocardiogram QRS complex abnormal [Unknown]
  - Memory impairment [Unknown]
  - Sinus tachycardia [Unknown]
  - Blood bicarbonate decreased [Unknown]
  - White blood cell count decreased [Unknown]
  - Mean cell haemoglobin concentration decreased [Unknown]
  - Blood glucose increased [Unknown]
  - Hallucination, visual [Unknown]
  - Macrocytosis [Unknown]
